FAERS Safety Report 4344125-8 (Version None)
Quarter: 2004Q2

REPORT INFORMATION
  Report Type: 
  Country: None (occurrence: None)
  Receive Date: 20040419
  Receipt Date: 20040401
  Transmission Date: 20050107
  Serious: Yes (Other)
  Sender: FDA-Public Use
  Company Number: 2004-DE-01808PO

PATIENT
  Age: 68 Year
  Sex: Male

DRUGS (1)
  1. SPIRIVA [Suspect]
     Indication: BRONCHITIS CHRONIC
     Dosage: 0.045 MG (18 MCG, 2 IN 1 D) ; IH
     Route: 055
     Dates: start: 20031106, end: 20040220

REACTIONS (2)
  - PROCTALGIA [None]
  - PRURITUS [None]
